FAERS Safety Report 4818902-0 (Version None)
Quarter: 2005Q4

REPORT INFORMATION
  Report Type: 
  Country: None (occurrence: None)
  Receive Date: 20051101
  Receipt Date: 20051020
  Transmission Date: 20060501
  Serious: Yes (Hospitalization)
  Sender: FDA-Public Use
  Company Number: 2005146476

PATIENT
  Age: 6 Year
  Sex: Female
  Weight: 16.2 kg

DRUGS (5)
  1. GENOTROPIN [Suspect]
     Indication: HYPOPITUITARISM
     Dosage: 1.9MG WEEKLY/7 TIMES A WEEK, SUBCUTANEOUS; 2.1 MG WEEKLY/7 TIMES A WEEK) SUBCUTANEOUS; 3.0 MG WEEKL/
     Route: 058
     Dates: start: 20020731, end: 20030121
  2. GENOTROPIN [Suspect]
     Indication: HYPOPITUITARISM
     Dosage: 1.9MG WEEKLY/7 TIMES A WEEK, SUBCUTANEOUS; 2.1 MG WEEKLY/7 TIMES A WEEK) SUBCUTANEOUS; 3.0 MG WEEKL/
     Route: 058
     Dates: start: 20030122, end: 20030717
  3. GENOTROPIN [Suspect]
     Indication: HYPOPITUITARISM
     Dosage: 1.9MG WEEKLY/7 TIMES A WEEK, SUBCUTANEOUS; 2.1 MG WEEKLY/7 TIMES A WEEK) SUBCUTANEOUS; 3.0 MG WEEKL/
     Route: 058
     Dates: start: 20030718, end: 20040114
  4. GENOTROPIN [Suspect]
     Indication: HYPOPITUITARISM
     Dosage: 1.9MG WEEKLY/7 TIMES A WEEK, SUBCUTANEOUS; 2.1 MG WEEKLY/7 TIMES A WEEK) SUBCUTANEOUS; 3.0 MG WEEKL/
     Route: 058
     Dates: start: 20040115, end: 20040803
  5. GENOTROPIN [Suspect]
     Indication: HYPOPITUITARISM
     Dosage: 1.9MG WEEKLY/7 TIMES A WEEK, SUBCUTANEOUS; 2.1 MG WEEKLY/7 TIMES A WEEK) SUBCUTANEOUS; 3.0 MG WEEKL/
     Route: 058
     Dates: start: 20040804

REACTIONS (1)
  - VOMITING [None]
